FAERS Safety Report 5240348-4 (Version None)
Quarter: 2007Q1

REPORT INFORMATION
  Report Type: 
  Country: None (occurrence: None)
  Receive Date: 20061208
  Receipt Date: 20050307
  Transmission Date: 20070707
  Serious: Yes (Other)
  Sender: FDA-Public Use
  Company Number: 2005UW03603

PATIENT
  Age: 54 Year
  Sex: Male
  Weight: 89.811 kg

DRUGS (8)
  1. CRESTOR [Suspect]
     Indication: BLOOD CHOLESTEROL INCREASED
     Dosage: 10 MG PO
     Route: 048
  2. ALTACE [Concomitant]
  3. DIOVAN [Concomitant]
  4. DEMADEX [Concomitant]
  5. ASPIRIN [Concomitant]
  6. COLCHICINE [Concomitant]
  7. DIAZEPAM [Concomitant]
  8. COREG [Concomitant]

REACTIONS (1)
  - DRUG SCREEN POSITIVE [None]
